FAERS Safety Report 20661610 (Version 3)
Quarter: 2022Q3

REPORT INFORMATION
  Report Type: Spontaneous
  Country: US (occurrence: US)
  Receive Date: 20220401
  Receipt Date: 20220704
  Transmission Date: 20221026
  Serious: No
  Sender: FDA-Public Use
  Company Number: US-NOVARTISTESTPH-NVSC2022US073756

PATIENT
  Age: 59 Year
  Sex: Female

DRUGS (2)
  1. COMBIPATCH [Suspect]
     Active Substance: ESTRADIOL\NORETHINDRONE ACETATE
     Indication: Hot flush
     Dosage: UNK, EVERY 3-4 DAYS
     Route: 062
     Dates: start: 202203
  2. COMBIPATCH [Suspect]
     Active Substance: ESTRADIOL\NORETHINDRONE ACETATE
     Dosage: UNK, QW PATCHES PER WEEK (MONDAYS AND THURSDAYS
     Route: 065
     Dates: start: 2022

REACTIONS (6)
  - Product adhesion issue [Recovered/Resolved]
  - Device adhesion issue [Recovered/Resolved]
  - Device issue [Recovered/Resolved]
  - Product storage error [Recovered/Resolved]
  - Vaginal haemorrhage [Not Recovered/Not Resolved]
  - Therapeutic product effect delayed [Recovered/Resolved]

NARRATIVE: CASE EVENT DATE: 20220301
